FAERS Safety Report 20985771 (Version 2)
Quarter: 2022Q3

REPORT INFORMATION
  Report Type: Report from Study
  Country: MX (occurrence: MX)
  Receive Date: 20220621
  Receipt Date: 20220723
  Transmission Date: 20221027
  Serious: Yes (Death, Hospitalization)
  Sender: FDA-Public Use
  Company Number: MX-NOVARTISPH-NVSC2022MX141443

PATIENT
  Age: 90 Year
  Sex: Female
  Weight: 52 kg

DRUGS (2)
  1. FEMARA [Suspect]
     Active Substance: LETROZOLE
     Indication: Breast cancer
     Dosage: 2.5 MG, QD (1) (PILL)
     Route: 048
     Dates: start: 202108
  2. MICARDIS [Concomitant]
     Active Substance: TELMISARTAN
     Indication: Hypertension
     Dosage: UNK
     Route: 048

REACTIONS (3)
  - Pleural effusion [Fatal]
  - Hip fracture [Fatal]
  - Fall [Unknown]

NARRATIVE: CASE EVENT DATE: 20220214
